FAERS Safety Report 4900922-9 (Version None)
Quarter: 2006Q1

REPORT INFORMATION
  Report Type: 
  Country: None (occurrence: None)
  Receive Date: 20060201
  Receipt Date: 20060116
  Transmission Date: 20060701
  Serious: Yes (Hospitalization)
  Sender: FDA-Public Use
  Company Number: DE200601002177

PATIENT
  Age: 73 Year
  Sex: Male

DRUGS (7)
  1. CYMBALTA [Suspect]
     Indication: DEPRESSION
     Dosage: 120 MG, ORAL
     Route: 048
     Dates: start: 20051101
  2. ZYPREXA [Concomitant]
  3. MIRTAZAPINE [Concomitant]
  4. RANITIDINE [Concomitant]
  5. PROSTAGUTT [Concomitant]
  6. CARMEN (LERCANIDIPINE) [Concomitant]
  7. ZOPICLONE (ZOPICLONE) [Concomitant]

REACTIONS (4)
  - GRANULOCYTE COUNT DECREASED [None]
  - HYPONATRAEMIA [None]
  - MONOCYTE COUNT INCREASED [None]
  - RENAL IMPAIRMENT [None]
